FAERS Safety Report 7841753-X (Version None)
Quarter: 2011Q4

REPORT INFORMATION
  Report Type: 
  Country: None (occurrence: None)
  Receive Date: 20111024
  Receipt Date: 20111024
  Transmission Date: 20120403
  Serious: Yes (Other)
  Sender: FDA-Public Use
  Company Number: None

PATIENT
  Age: 49 Year
  Sex: Female
  Weight: 82.9175 kg

DRUGS (7)
  1. SYNTHROID [Concomitant]
  2. DYAZIDE [Concomitant]
  3. VIVELLE-DOT [Concomitant]
  4. PROMETRIUM [Concomitant]
  5. SECTRAL [Suspect]
     Indication: CARDIAC FAILURE CONGESTIVE
     Dosage: 200MG Q.D. ORAL 047
     Route: 048
     Dates: start: 20110901
  6. CYTOMEL [Concomitant]
  7. SYNTHROID [Concomitant]

REACTIONS (1)
  - HYPOTHYROIDISM [None]
